FAERS Safety Report 9753213 (Version 1)
Quarter: 2013Q4

REPORT INFORMATION
  Report Type: Spontaneous
  Country: US (occurrence: US)
  Receive Date: 20131213
  Receipt Date: 20131213
  Transmission Date: 20140711
  Serious: No
  Sender: FDA-Public Use
  Company Number: US-GILEAD-2010-0027377

PATIENT
  Sex: Male
  Weight: 79.38 kg

DRUGS (6)
  1. LETAIRIS [Suspect]
     Indication: PULMONARY ARTERIAL HYPERTENSION
     Route: 048
     Dates: start: 20090422
  2. INDERAL [Concomitant]
  3. HYDROCODONE-APAP [Concomitant]
  4. PREVACID [Concomitant]
  5. VITAMIN D [Concomitant]
  6. MULTIVITAMIN [Concomitant]

REACTIONS (2)
  - Oedema peripheral [Unknown]
  - Face oedema [Unknown]
